FAERS Safety Report 7677857 (Version 2)
Quarter: 2017Q4

REPORT INFORMATION
  Report Type: Spontaneous
  Country: US (occurrence: US)
  Receive Date: 20101122
  Receipt Date: 20171025
  Transmission Date: 20180321
  Serious: No
  Sender: FDA-Public Use
  Company Number: US-BAYER-201030684NA

PATIENT
  Sex: Female

DRUGS (1)
  1. CLIMARA PRO [Suspect]
     Active Substance: ESTRADIOL\LEVONORGESTREL
     Indication: AUTONOMIC NERVOUS SYSTEM IMBALANCE
     Dosage: 0.045MG/0.015MG/DAY
     Route: 062
     Dates: start: 2007

REACTIONS (3)
  - Product adhesion issue [None]
  - Application site pruritus [Not Recovered/Not Resolved]
  - Product physical issue [None]
